FAERS Safety Report 6382142-7 (Version None)
Quarter: 2009Q3

REPORT INFORMATION
  Report Type: 
  Country: None (occurrence: None)
  Receive Date: 20090925
  Receipt Date: 20090915
  Transmission Date: 20100115
  Serious: Yes (Other)
  Sender: FDA-Public Use
  Company Number: 231311K08USA

PATIENT
  Age: 45 Year
  Sex: Female

DRUGS (5)
  1. REBIF [Suspect]
     Indication: MULTIPLE SCLEROSIS
     Dosage: 44 MCG, 3 IN 1 WEEKS, SUBCUTANEOUS
     Route: 058
     Dates: start: 20060315, end: 20081115
  2. CARBATROL [Concomitant]
  3. DIAZEPAM [Concomitant]
  4. EFFEXOR XR [Concomitant]
  5. MULTIVITAMIN (MULTIVITAMIN  /00831701/) [Concomitant]

REACTIONS (5)
  - ABDOMINAL WALL DISORDER [None]
  - BLOOD CHOLESTEROL INCREASED [None]
  - HEPATIC STEATOSIS [None]
  - HEPATOMEGALY [None]
  - MULTIPLE SCLEROSIS RELAPSE [None]
